FAERS Safety Report 8463448 (Version 3)
Quarter: 2013Q2

REPORT INFORMATION
  Report Type: Spontaneous
  Country: US (occurrence: US)
  Receive Date: 20120316
  Receipt Date: 20130412
  Transmission Date: 20140414
  Serious: Yes (Other)
  Sender: FDA-Public Use
  Company Number: US-PFIZER INC-2012064510

PATIENT
  Age: 44 Year
  Sex: Female

DRUGS (19)
  1. DETROL LA [Suspect]
     Dosage: 4 MG 24 HR CAPSULE, 1 CAPSULE DAILY
     Route: 048
  2. NEURONTIN [Suspect]
     Dosage: 600 MG, 3X/DAY
     Route: 048
  3. BONIVA [Concomitant]
     Dosage: 150 MG,EVERY 30 DAYS
     Route: 048
  4. CELEXA [Concomitant]
     Dosage: 40 MG, 1 TABLET DAILY
     Route: 048
  5. CYANOCOBALAMIN [Concomitant]
     Dosage: 1000 UG/ML, TAKE 1 SHOT DAILY FOR 4 DAYS IN A ROW,THEN 1 SHOT WEEKLY FOR 4 WEEKS,THEN 1 SHOT MONTHLY
  6. FLEXERIL [Concomitant]
     Dosage: 10 MG, AS NEEDED (NIGHTLY)
     Route: 048
  7. CYMBALTA [Concomitant]
     Dosage: 30 MG, 1 CAPSULE DAILY
     Route: 048
  8. VITAMIN D [Concomitant]
     Dosage: 50000 UNIT CAPSULE
  9. MEVACOR [Concomitant]
     Dosage: 10 MG, 1 TABLET NIGHTLY
     Route: 048
  10. TOPROL XL [Concomitant]
     Dosage: 50 MG, 24 HR TABLET
  11. ULTRAM [Concomitant]
     Dosage: 100 MG, 3X/DAY (50 MG,2 TABLETS, 3 TIMES DAILY)
     Route: 048
  12. DESYREL [Concomitant]
     Dosage: 50 MG,1 TABLET NIGHTLY
     Route: 048
  13. VITAMIN D3 [Concomitant]
     Dosage: 2000 UNIT TABLET, 1X/DAY (DAILY)
     Route: 048
  14. CRESTOR [Concomitant]
     Dosage: 10 MG, 1 TABLET EVERY EVENING
     Route: 048
  15. LOPRESSOR [Concomitant]
     Dosage: 50 MG, 1 TAB DAILY (NIGHTLY)
     Route: 048
  16. BUSPAR [Concomitant]
     Dosage: 20 MG, 3X/DAY (10MG TABLET 2 TABLETS 3 TIMES DAILY)
     Route: 048
  17. ESTRACE [Concomitant]
     Dosage: 0.5 MG, 1X/DAY (DAILY)
     Route: 048
  18. LIDODERM [Concomitant]
     Dosage: 5 %, 1X/DAY (700MG/PATCH)
  19. RESTORIL [Concomitant]
     Dosage: 30 MG, NIGHTLY
     Route: 048

REACTIONS (17)
  - Essential hypertension [Unknown]
  - Hypertonic bladder [Unknown]
  - Vitamin D deficiency [Unknown]
  - Vitamin B12 deficiency [Unknown]
  - Arthralgia [Unknown]
  - Back pain [Unknown]
  - Depression [Unknown]
  - Insomnia [Unknown]
  - Anxiety disorder [Unknown]
  - Neck pain [Unknown]
  - Fibromyalgia [Unknown]
  - Arthralgia [Unknown]
  - Neuropathy peripheral [Unknown]
  - Blood cholesterol increased [Unknown]
  - Tension headache [Unknown]
  - Menstrual disorder [Unknown]
  - Headache [Unknown]
